FAERS Safety Report 5569787-9 (Version None)
Quarter: 2007Q4

REPORT INFORMATION
  Report Type: 
  Country: None (occurrence: None)
  Receive Date: 20071218
  Receipt Date: 20071130
  Transmission Date: 20080405
  Serious: No
  Sender: FDA-Public Use
  Company Number: 2007S1010085

PATIENT
  Age: 5 Year
  Sex: Male

DRUGS (1)
  1. ISOTRETINOIN [Suspect]
     Indication: MEDULLOBLASTOMA

REACTIONS (2)
  - MALIGNANT NEOPLASM PROGRESSION [None]
  - MEDULLOBLASTOMA [None]
